FAERS Safety Report 6292867-X (Version None)
Quarter: 2009Q3

REPORT INFORMATION
  Report Type: 
  Country: None (occurrence: None)
  Receive Date: 20090731
  Receipt Date: 20090727
  Transmission Date: 20100115
  Serious: Yes (Death)
  Sender: FDA-Public Use
  Company Number: PHHY2009MX31210

PATIENT
  Age: 53 Year
  Sex: Female

DRUGS (3)
  1. DIOVAN [Suspect]
     Indication: HYPERTENSION
     Dosage: 1 TABLET DAILY
     Route: 048
     Dates: start: 20060301, end: 20090701
  2. LIPITOR [Concomitant]
     Dosage: 1 TABLET DAILY
  3. BI-EUGLUCON [Concomitant]
     Indication: DIABETES MELLITUS
     Dosage: 2 TABLETS DAILY

REACTIONS (2)
  - CARDIAC ARREST [None]
  - SURGERY [None]
